FAERS Safety Report 20638294 (Version 2)
Quarter: 2022Q1

REPORT INFORMATION
  Report Type: Spontaneous
  Country: JP (occurrence: JP)
  Receive Date: 20220325
  Receipt Date: 20220331
  Transmission Date: 20220424
  Serious: Yes (Hospitalization)
  Sender: FDA-Public Use
  Company Number: JP-UCBSA-2021057527

PATIENT
  Age: 8 Decade
  Sex: Male

DRUGS (4)
  1. LEVETIRACETAM [Suspect]
     Active Substance: LEVETIRACETAM
     Indication: Partial seizures
     Dosage: 2000 MILLIGRAM, ONCE DAILY (QD)
     Route: 048
  2. VIMPAT [Suspect]
     Active Substance: LACOSAMIDE
     Indication: Partial seizures
     Dosage: 100 MILLIGRAM, 2X/DAY (BID)
     Route: 048
  3. PERAMPANEL [Suspect]
     Active Substance: PERAMPANEL
     Indication: Seizure
     Dosage: 8 MILLIGRAM, ONCE DAILY (QD)
  4. PERAMPANEL [Suspect]
     Active Substance: PERAMPANEL
     Dosage: 6 MILLIGRAM, ONCE DAILY (QD)

REACTIONS (12)
  - Delusion of reference [Recovered/Resolved]
  - Persecutory delusion [Recovered/Resolved]
  - Disorientation [Recovered/Resolved]
  - Memory impairment [Recovered/Resolved]
  - Affect lability [Unknown]
  - Irritability [Recovering/Resolving]
  - Aggression [Recovered/Resolved]
  - Poriomania [Recovered/Resolved]
  - Speech disorder [Recovered/Resolved]
  - Anger [Recovered/Resolved]
  - Language disorder [Recovered/Resolved]
  - Product use issue [Unknown]
